FAERS Safety Report 7935053-7 (Version None)
Quarter: 2011Q4

REPORT INFORMATION
  Report Type: 
  Country: None (occurrence: None)
  Receive Date: 20111122
  Receipt Date: 20111114
  Transmission Date: 20120403
  Serious: Yes (Disabling)
  Sender: FDA-Public Use
  Company Number: CA-ASTRAZENECA-2011SE68908

PATIENT
  Age: 61 Year
  Sex: Female
  Weight: 78 kg

DRUGS (2)
  1. NEXIUM [Suspect]
     Route: 048
  2. ADALAT [Concomitant]

REACTIONS (2)
  - FATIGUE [None]
  - OESOPHAGEAL SPASM [None]
